FAERS Safety Report 23270622 (Version 4)
Quarter: 2024Q4

REPORT INFORMATION
  Report Type: Report from Study
  Country: CA (occurrence: CA)
  Receive Date: 20231207
  Receipt Date: 20241024
  Transmission Date: 20250115
  Serious: Yes (Other)
  Sender: JOHNSON AND JOHNSON
  Company Number: CA-JNJFOC-20230935064

PATIENT
  Age: 48 Year
  Sex: Male

DRUGS (3)
  1. STELARA [Suspect]
     Active Substance: USTEKINUMAB
     Indication: Crohn^s disease
     Route: 058
  2. STELARA [Suspect]
     Active Substance: USTEKINUMAB
     Route: 058
     Dates: start: 2023
  3. STELARA [Suspect]
     Active Substance: USTEKINUMAB
     Route: 058
     Dates: start: 20190220, end: 20240405

REACTIONS (4)
  - Epididymitis [Unknown]
  - Crohn^s disease [Unknown]
  - Groin infection [Unknown]
  - Gastrointestinal inflammation [Unknown]

NARRATIVE: CASE EVENT DATE: 20230101
